FAERS Safety Report 13497479 (Version 1)
Quarter: 2017Q2

REPORT INFORMATION
  Report Type: Spontaneous
  Country: US (occurrence: US)
  Receive Date: 20170428
  Receipt Date: 20170428
  Transmission Date: 20170830
  Serious: No
  Sender: FDA-Public Use
  Company Number: None

PATIENT
  Age: 15 Year
  Sex: Female
  Weight: 54.48 kg

DRUGS (1)
  1. VENOFER [Suspect]
     Active Substance: IRON SUCROSE
     Indication: ANAEMIA
     Route: 042
     Dates: start: 20170410, end: 20170410

REACTIONS (4)
  - Cough [None]
  - Heart rate increased [None]
  - Wheezing [None]
  - Pruritus [None]

NARRATIVE: CASE EVENT DATE: 20170410
